FAERS Safety Report 7761169-4 (Version None)
Quarter: 2011Q3

REPORT INFORMATION
  Report Type: 
  Country: None (occurrence: None)
  Receive Date: 20110920
  Receipt Date: 20110913
  Transmission Date: 20111222
  Serious: Yes (Other)
  Sender: FDA-Public Use
  Company Number: RO-AMGEN-ROUSP2011047077

PATIENT
  Age: 62 Year
  Sex: Female

DRUGS (4)
  1. ALPHA D3 [Concomitant]
     Indication: OSTEOPOROSIS
     Dosage: 0.5 MUG, UNK
     Route: 048
     Dates: start: 20110301
  2. NEBIVOLOL HCL [Concomitant]
     Indication: HYPERTENSION
     Dosage: UNK
     Route: 048
  3. TELMISARTAN AND HYDROCHLOROTHIAZIDE [Concomitant]
     Indication: HYPERTENSION
     Dosage: UNK
     Route: 048
  4. PROLIA [Suspect]
     Indication: OSTEOPOROSIS POSTMENOPAUSAL
     Dosage: 60 MG, UNK
     Route: 058
     Dates: start: 20110301

REACTIONS (3)
  - MYALGIA [None]
  - HEADACHE [None]
  - ASTHENIA [None]
